FAERS Safety Report 4270470-0 (Version None)
Quarter: 2004Q1

REPORT INFORMATION
  Report Type: 
  Country: None (occurrence: None)
  Receive Date: 20040114
  Receipt Date: 20031215
  Transmission Date: 20041129
  Serious: Yes (Life-Threatening, Hospitalization, Other)
  Sender: FDA-Public Use
  Company Number: DE-GLAXOSMITHKLINE-D0042740A

PATIENT
  Age: 39 Year
  Sex: Male
  Weight: 77 kg

DRUGS (1)
  1. IMIGRAN [Suspect]
     Indication: MIGRAINE
     Route: 065
     Dates: start: 20010101

REACTIONS (14)
  - AMNESIA [None]
  - ASTHENIA [None]
  - BUNDLE BRANCH BLOCK RIGHT [None]
  - CHEST PAIN [None]
  - CORONARY ARTERY STENOSIS [None]
  - DYSPNOEA [None]
  - ELECTROCARDIOGRAM ABNORMAL [None]
  - FATIGUE [None]
  - LEUKOPENIA [None]
  - MIGRAINE [None]
  - MYOCARDIAL INFARCTION [None]
  - POST PROCEDURAL FISTULA [None]
  - POST PROCEDURAL PAIN [None]
  - VENTRICULAR FIBRILLATION [None]
